FAERS Safety Report 20044770 (Version 1)
Quarter: 2021Q4

REPORT INFORMATION
  Report Type: Report from Study
  Country: ES (occurrence: ES)
  Receive Date: 20211108
  Receipt Date: 20211108
  Transmission Date: 20220303
  Serious: Yes (Other)
  Sender: FDA-Public Use
  Company Number: ES-MYLANLABS-2021M1081899

PATIENT
  Age: 51 Year
  Sex: Female

DRUGS (3)
  1. CISPLATIN [Suspect]
     Active Substance: CISPLATIN
     Indication: Squamous cell carcinoma of head and neck
     Dosage: 100 MILLIGRAM/SQ. METER, 3XW
     Route: 065
  2. FLUOROURACIL [Suspect]
     Active Substance: FLUOROURACIL
     Indication: Squamous cell carcinoma of head and neck
     Dosage: 750 MILLIGRAM/SQ. METER, QD, PER DAY ON DAYS 1 TO 5
  3. CETUXIMAB [Suspect]
     Active Substance: CETUXIMAB
     Indication: Squamous cell carcinoma of head and neck
     Dosage: UNK, QWON DAYS 1, 8 AND 15
     Route: 065

REACTIONS (5)
  - Pneumonia aspiration [Unknown]
  - Rash [Unknown]
  - Onycholysis [Unknown]
  - Nail dystrophy [Unknown]
  - Palmar-plantar erythrodysaesthesia syndrome [Unknown]
